FAERS Safety Report 13177789 (Version 2)
Quarter: 2019Q1

REPORT INFORMATION
  Report Type: Spontaneous
  Country: FR (occurrence: FR)
  Receive Date: 20170201
  Receipt Date: 20190208
  Transmission Date: 20190417
  Serious: Yes (Hospitalization, Other)
  Sender: FDA-Public Use
  Company Number: FR-BIOGEN-2017BI00349471

PATIENT
  Age: 41 Year
  Sex: Male
  Weight: 70 kg

DRUGS (5)
  1. RIVOTRIL [Concomitant]
     Active Substance: CLONAZEPAM
     Indication: PRODUCT USED FOR UNKNOWN INDICATION
     Route: 048
  2. EDEX [Concomitant]
     Active Substance: ALPROSTADIL
     Indication: PRODUCT USED FOR UNKNOWN INDICATION
     Route: 017
  3. BOTULINIC TOXIN [Concomitant]
     Indication: MUSCLE SPASTICITY
     Route: 065
     Dates: start: 201610
  4. FAMPYRA [Suspect]
     Active Substance: DALFAMPRIDINE
     Indication: GAIT DISTURBANCE
     Route: 048
     Dates: start: 201305
  5. TRANSIPEG (MACROGOL) [Concomitant]
     Active Substance: POLYETHYLENE GLYCOLS
     Indication: PRODUCT USED FOR UNKNOWN INDICATION
     Route: 065

REACTIONS (5)
  - Trigeminal neuralgia [Not Recovered/Not Resolved]
  - Toothache [Unknown]
  - Gait disturbance [Unknown]
  - Tooth infection [Unknown]
  - Tooth abscess [Recovered/Resolved with Sequelae]

NARRATIVE: CASE EVENT DATE: 2016
